FAERS Safety Report 7587248-2 (Version None)
Quarter: 2011Q3

REPORT INFORMATION
  Report Type: 
  Country: None (occurrence: None)
  Receive Date: 20110701
  Receipt Date: 20110621
  Transmission Date: 20111222
  Serious: Yes (Death, Other)
  Sender: FDA-Public Use
  Company Number: AU-ROCHE-785367

PATIENT

DRUGS (1)
  1. AVASTIN [Suspect]
     Route: 065

REACTIONS (2)
  - DEATH [None]
  - CEREBRAL HAEMORRHAGE [None]
